FAERS Safety Report 6158964-4 (Version None)
Quarter: 2009Q2

REPORT INFORMATION
  Report Type: 
  Country: None (occurrence: None)
  Receive Date: 20090417
  Receipt Date: 20090406
  Transmission Date: 20091009
  Serious: Yes (Other)
  Sender: FDA-Public Use
  Company Number: US-PFIZER INC-2009194015

PATIENT
  Sex: Female

DRUGS (2)
  1. BEXTRA [Suspect]
     Indication: ARTHRALGIA
     Dosage: UNK
     Dates: start: 20040101
  2. BEXTRA [Suspect]
     Indication: MUSCLE SPASMS

REACTIONS (1)
  - CEREBROVASCULAR ACCIDENT [None]
